FAERS Safety Report 8630255 (Version 2)
Quarter: 2013Q4

REPORT INFORMATION
  Report Type: Spontaneous
  Country: US (occurrence: US)
  Receive Date: 20120622
  Receipt Date: 20131203
  Transmission Date: 20140711
  Serious: Yes (Other)
  Sender: FDA-Public Use
  Company Number: US-ASTRAZENECA-2012SE34457

PATIENT
  Age: 58 Year
  Sex: Female

DRUGS (13)
  1. NEXIUM [Suspect]
     Indication: GASTROOESOPHAGEAL REFLUX DISEASE
     Route: 048
  2. NEXIUM [Suspect]
     Indication: GASTROOESOPHAGEAL REFLUX DISEASE
     Route: 048
     Dates: start: 2002, end: 2012
  3. PEPTO-BISMOL [Concomitant]
     Indication: ABDOMINAL DISCOMFORT
  4. ADVAIR [Concomitant]
     Indication: ASTHMA
     Dosage: 50/500 MG
  5. KETOPROFEN [Concomitant]
     Indication: ARTHRITIS
  6. VERAPAMIL [Concomitant]
     Indication: CARDIAC DISORDER
  7. VERAPAMIL [Concomitant]
     Indication: ATRIAL FIBRILLATION
  8. FULOSAPHINE [Concomitant]
  9. PREVENTAL [Concomitant]
  10. FLUOXETINE [Concomitant]
     Indication: PANIC ATTACK
  11. SANDOSTATIN [Concomitant]
     Indication: LUNG NEOPLASM MALIGNANT
  12. WARFARIN [Concomitant]
     Indication: THROMBOSIS
  13. ATORVASTATIN [Concomitant]
     Indication: BLOOD CHOLESTEROL ABNORMAL

REACTIONS (14)
  - Carcinoid tumour pulmonary [Unknown]
  - Osteoporosis [Unknown]
  - Multiple fractures [Unknown]
  - Osteopenia [Unknown]
  - Body height decreased [Unknown]
  - Back pain [Unknown]
  - Muscle spasms [Unknown]
  - Bone disorder [Unknown]
  - Cataract [Unknown]
  - Chronic obstructive pulmonary disease [Unknown]
  - Cardiovascular disorder [Unknown]
  - Peripheral vascular disorder [Unknown]
  - Rheumatoid arthritis [Unknown]
  - Scoliosis [Unknown]
